FAERS Safety Report 10087102 (Version 1)
Quarter: 2014Q2

REPORT INFORMATION
  Report Type: Other
  Country: GB (occurrence: GB)
  Receive Date: 20140418
  Receipt Date: 20140418
  Transmission Date: 20141212
  Serious: Yes (Other)
  Sender: FDA-Public Use
  Company Number: GB-BRISTOL-MYERS SQUIBB COMPANY-20641759

PATIENT
  Sex: 0
  Weight: 3 kg

DRUGS (2)
  1. METFORMIN HCL [Suspect]
     Indication: GESTATIONAL DIABETES
     Route: 064
  2. INSULIN [Suspect]
     Indication: GESTATIONAL DIABETES
     Route: 064

REACTIONS (2)
  - Shoulder dystocia [Unknown]
  - Foetal exposure during pregnancy [Recovered/Resolved]
